FAERS Safety Report 18289003 (Version 4)
Quarter: 2020Q4

REPORT INFORMATION
  Report Type: Report from Study
  Country: BE (occurrence: BE)
  Receive Date: 20200921
  Receipt Date: 20201104
  Transmission Date: 20210113
  Serious: Yes (Hospitalization, Other)
  Sender: FDA-Public Use
  Company Number: BE-BAYER-2019-199146

PATIENT
  Age: 71 Year
  Sex: Male

DRUGS (10)
  1. ELIQUIS [Concomitant]
     Active Substance: APIXABAN
     Dosage: UNK
  2. SOTALOL. [Concomitant]
     Active Substance: SOTALOL
     Dosage: UNK
  3. BIFITERAL [Concomitant]
     Active Substance: LACTULOSE
     Dosage: UNK
  4. NEXAVAR [Suspect]
     Active Substance: SORAFENIB
     Indication: HEPATOCELLULAR CARCINOMA
     Dosage: 400 MG DAILY
     Dates: start: 20200617, end: 20201026
  5. PANTOMED [PANTOPRAZOLE SODIUM SESQUIHYDRATE] [Concomitant]
     Active Substance: PANTOPRAZOLE SODIUM
     Dosage: UNK
  6. TARGAXAN [Concomitant]
     Active Substance: RIFAXIMIN
     Indication: HYPERAMMONAEMIC ENCEPHALOPATHY
     Dosage: UNK
     Dates: end: 20200505
  7. CALCIUM [Concomitant]
     Active Substance: CALCIUM
     Dosage: UNK
  8. NEXAVAR [Suspect]
     Active Substance: SORAFENIB
     Indication: HEPATOCELLULAR CARCINOMA
     Dosage: 400 MG DAILY
     Dates: start: 20191030
  9. AMLOR [Concomitant]
     Active Substance: AMLODIPINE BESYLATE
     Dosage: UNK
  10. FOLAVIT [Concomitant]
     Active Substance: FOLIC ACID
     Dosage: UNK

REACTIONS (26)
  - Ammonia increased [Not Recovered/Not Resolved]
  - Hypertension [Recovering/Resolving]
  - Fatigue [Not Recovered/Not Resolved]
  - Hepatocellular carcinoma [Not Recovered/Not Resolved]
  - Phimosis [Recovered/Resolved]
  - Confusional state [Recovered/Resolved]
  - Pruritus [Recovered/Resolved]
  - Hypertension [None]
  - Hyperkeratosis [Recovering/Resolving]
  - Muscle spasms [Recovering/Resolving]
  - Toothache [Not Recovered/Not Resolved]
  - Cardiac arrest [Recovering/Resolving]
  - Retinal vein thrombosis [Not Recovered/Not Resolved]
  - Peau d^orange [Recovered/Resolved with Sequelae]
  - Diverticulitis [Recovered/Resolved]
  - Rash [Recovered/Resolved]
  - Blood bilirubin increased [Recovered/Resolved]
  - Decreased appetite [Not Recovered/Not Resolved]
  - Fluid retention [Not Recovered/Not Resolved]
  - Nervousness [Recovered/Resolved]
  - Inguinal hernia [Not Recovered/Not Resolved]
  - Tachycardia [Not Recovered/Not Resolved]
  - Weight decreased [Recovering/Resolving]
  - Diarrhoea [Recovering/Resolving]
  - Off label use [None]
  - Tachycardia [Recovering/Resolving]

NARRATIVE: CASE EVENT DATE: 20191030
